FAERS Safety Report 16045024 (Version 1)
Quarter: 2019Q1

REPORT INFORMATION
  Report Type: Report from Study
  Country: ES (occurrence: ES)
  Receive Date: 20190307
  Receipt Date: 20190307
  Transmission Date: 20190418
  Serious: Yes (Life-Threatening, Hospitalization, Other)
  Sender: FDA-Public Use
  Company Number: ES-ACCORD-110874

PATIENT
  Age: 69 Year
  Sex: Male

DRUGS (6)
  1. CLOPIDOGREL [Suspect]
     Active Substance: CLOPIDOGREL BISULFATE
     Indication: ISCHAEMIC CARDIOMYOPATHY
     Route: 048
     Dates: start: 20171116, end: 20171116
  2. CLEXANE [Interacting]
     Active Substance: ENOXAPARIN SODIUM
     Indication: ISCHAEMIC CARDIOMYOPATHY
     Dosage: STRENGTH 10,000 IU (100 MG) / 1 ML,10 PRE-FILLED SYRINGES OF 1 ML
     Route: 058
     Dates: start: 20171116, end: 20171116
  3. TROMALYT [Interacting]
     Active Substance: ASPIRIN
     Indication: ISCHAEMIC CARDIOMYOPATHY
     Dosage: HARD CAPSULES OF PROLONGED RELEASE, 28 CAPSULES
     Route: 048
     Dates: start: 20130108, end: 20171117
  4. TICAGRELOR. [Interacting]
     Active Substance: TICAGRELOR
     Indication: ISCHAEMIC CARDIOMYOPATHY
     Route: 048
     Dates: start: 20171117, end: 20171117
  5. ROSUVASTATIN. [Concomitant]
     Active Substance: ROSUVASTATIN
     Indication: DYSLIPIDAEMIA
     Route: 048
     Dates: start: 20140120, end: 20171118
  6. LERCANIDIPINE [Concomitant]
     Active Substance: LERCANIDIPINE
     Indication: HYPERTENSION
     Route: 048
     Dates: start: 20160525, end: 20171118

REACTIONS (2)
  - Upper gastrointestinal haemorrhage [Recovered/Resolved]
  - Drug interaction [Unknown]

NARRATIVE: CASE EVENT DATE: 20171118
